FAERS Safety Report 23949337 (Version 3)
Quarter: 2024Q4

REPORT INFORMATION
  Report Type: Spontaneous
  Country: IT (occurrence: IT)
  Receive Date: 20240607
  Receipt Date: 20241127
  Transmission Date: 20250114
  Serious: Yes (Other)
  Sender: CHEPLAPHARM
  Company Number: None

PATIENT
  Age: 82 Year
  Sex: Male
  Weight: 74 kg

DRUGS (17)
  1. CAPECITABINE [Suspect]
     Active Substance: CAPECITABINE
     Indication: Colorectal adenocarcinoma
     Dosage: 3500 MG PER DAY FOR 14 DAYS FOLLOWED BY A 7 DAY REST PERIOD. THE PATIENT TAKES 7 CP OF 500 MG EVE...
     Route: 048
     Dates: start: 20230607, end: 20230620
  2. CAPECITABINE [Suspect]
     Active Substance: CAPECITABINE
     Indication: Colorectal adenocarcinoma
     Dosage: 5TH CYCLE?DAILY DOSE: 2500 MILLIGRAM
     Route: 048
     Dates: start: 20231026, end: 20231108
  3. CAPECITABINE [Suspect]
     Active Substance: CAPECITABINE
     Indication: Colorectal adenocarcinoma
     Dosage: THERAPEUTIC SCHEME: G1-G14, Q21?DAILY DOSE: 1000 MILLIGRAM
     Route: 048
     Dates: start: 20240222, end: 20240306
  4. CAPECITABINE [Suspect]
     Active Substance: CAPECITABINE
     Indication: Colorectal adenocarcinoma
     Dosage: DAILY DOSE: 2000 MILLIGRAM
     Route: 048
     Dates: start: 20240404, end: 20240417
  5. CAPECITABINE [Suspect]
     Active Substance: CAPECITABINE
     Indication: Colorectal adenocarcinoma
     Dosage: DAILY DOSE: 2000 MILLIGRAM
     Route: 048
     Dates: start: 20240829, end: 20240911
  6. AVASTIN [Suspect]
     Active Substance: BEVACIZUMAB
     Indication: Colorectal adenocarcinoma
     Dosage: 1ST CYCLE
     Route: 042
     Dates: start: 20230607, end: 20230607
  7. AVASTIN [Suspect]
     Active Substance: BEVACIZUMAB
     Indication: Colorectal adenocarcinoma
     Dosage: 5TH CYCLE
     Route: 042
     Dates: start: 20231025, end: 20231025
  8. AVASTIN [Suspect]
     Active Substance: BEVACIZUMAB
     Indication: Colorectal adenocarcinoma
     Dosage: 5TH CYCLE
     Route: 042
     Dates: start: 20240222, end: 20240222
  9. AVASTIN [Suspect]
     Active Substance: BEVACIZUMAB
     Indication: Colorectal adenocarcinoma
     Route: 042
     Dates: start: 20240403, end: 20240403
  10. AVASTIN [Suspect]
     Active Substance: BEVACIZUMAB
     Indication: Colorectal adenocarcinoma
     Route: 042
     Dates: start: 20240828, end: 20240828
  11. CARVEDILOL [Concomitant]
     Active Substance: CARVEDILOL
  12. ASPIRIN [Concomitant]
     Active Substance: ASPIRIN
  13. Cacit [Concomitant]
  14. ESOMEPRAZOLE [Concomitant]
     Active Substance: ESOMEPRAZOLE
  15. KEPPRA [Concomitant]
     Active Substance: LEVETIRACETAM
  16. OMEGA-3-ACID ETHYL ESTERS [Concomitant]
     Active Substance: OMEGA-3-ACID ETHYL ESTERS
  17. ROCALTROL [Concomitant]
     Active Substance: CALCITRIOL

REACTIONS (11)
  - Azotaemia [Unknown]
  - Thrombocytopenia [Recovering/Resolving]
  - Erythema [Recovered/Resolved]
  - Diarrhoea [Recovered/Resolved]
  - Diarrhoea [Recovered/Resolved]
  - Diarrhoea [Recovered/Resolved]
  - Diarrhoea [Unknown]
  - Anaemia [Not Recovered/Not Resolved]
  - Diarrhoea [Recovered/Resolved]
  - Blood creatinine increased [Unknown]
  - Gamma-glutamyltransferase increased [Unknown]

NARRATIVE: CASE EVENT DATE: 20230608
